FAERS Safety Report 16257773 (Version 2)
Quarter: 2020Q3

REPORT INFORMATION
  Report Type: Spontaneous
  Country: US (occurrence: US)
  Receive Date: 20190430
  Receipt Date: 20190501
  Transmission Date: 20201105
  Serious: Yes (Other)
  Sender: FDA-Public Use
  Company Number: US-CELGENEUS-USA-20190409205

PATIENT

DRUGS (2)
  1. ABRAXANE [Suspect]
     Active Substance: PACLITAXEL
     Indication: PANCREATIC CARCINOMA
     Dosage: 125 MILLIGRAM/SQ. METER
     Route: 041
  2. LMB?100. [Suspect]
     Active Substance: LMB-100
     Indication: PANCREATIC CARCINOMA
     Dosage: 65 MICROGRAM/KILOGRAM
     Route: 065

REACTIONS (2)
  - Oedema [Unknown]
  - Urine output decreased [Unknown]
